FAERS Safety Report 5500455-5 (Version None)
Quarter: 2007Q4

REPORT INFORMATION
  Report Type: 
  Country: None (occurrence: None)
  Receive Date: 20071029
  Receipt Date: 20071016
  Transmission Date: 20080405
  Serious: Yes (Death, Hospitalization, Other)
  Sender: FDA-Public Use
  Company Number: ZA-ROCHE-527683

PATIENT
  Age: 42 Year
  Sex: Male

DRUGS (4)
  1. PYRIMETHAMINE/SULFADOXINE [Suspect]
     Indication: MALARIA
     Route: 065
  2. ARTESUNATE [Suspect]
     Route: 065
  3. AMOXICILLIN [Concomitant]
  4. ACETAMINOPHEN [Concomitant]

REACTIONS (6)
  - CONFUSIONAL STATE [None]
  - DEATH [None]
  - DIZZINESS [None]
  - DYSPNOEA [None]
  - FALL [None]
  - HEADACHE [None]
